FAERS Safety Report 17870512 (Version 3)
Quarter: 2022Q1

REPORT INFORMATION
  Report Type: Spontaneous
  Country: US (occurrence: US)
  Receive Date: 20200608
  Receipt Date: 20220203
  Transmission Date: 20220424
  Serious: Yes (Other)
  Sender: FDA-Public Use
  Company Number: US-PFIZER INC-2020221878

PATIENT
  Age: 63 Year
  Sex: Female

DRUGS (1)
  1. XELJANZ XR [Suspect]
     Active Substance: TOFACITINIB CITRATE
     Dosage: 11 MG, UNK

REACTIONS (5)
  - COVID-19 [Unknown]
  - Ligament rupture [Unknown]
  - Limb injury [Unknown]
  - Fall [Unknown]
  - Blood glucose abnormal [Unknown]

NARRATIVE: CASE EVENT DATE: 20220101
